FAERS Safety Report 8303781-X (Version None)
Quarter: 2012Q2

REPORT INFORMATION
  Report Type: 
  Country: None (occurrence: None)
  Receive Date: 20120423
  Receipt Date: 20120410
  Transmission Date: 20120825
  Serious: Yes (Hospitalization)
  Sender: FDA-Public Use
  Company Number: PHHY2012NL023307

PATIENT
  Sex: Female
  Weight: 91 kg

DRUGS (9)
  1. TOBI [Suspect]
     Indication: PSEUDOMONAS INFECTION
     Dosage: UNK
     Dates: start: 20111222, end: 20120120
  2. BERODUAL [Concomitant]
     Dosage: 50/20 2XDD1
  3. LIPITOR [Concomitant]
     Dosage: 10 MG, QD
  4. DICLOFENAC SODIUM [Concomitant]
     Dosage: 50 MG, BID
     Route: 048
  5. METFORMIN HCL [Concomitant]
     Dosage: 500 MG, TID
     Route: 048
  6. FLUTICASONE PROPIONATE/SALMETEROL [Concomitant]
     Dosage: 50/250 2XDD 1
  7. ATACAND [Concomitant]
     Dosage: 16 MG, QD
  8. PANTOPRAZOLE [Concomitant]
     Dosage: 20 MG, QD
     Route: 048
  9. SPIRIVA [Concomitant]
     Dosage: 1XDD 18

REACTIONS (4)
  - INCREASED UPPER AIRWAY SECRETION [None]
  - EPISTAXIS [None]
  - COUGH [None]
  - CHRONIC OBSTRUCTIVE PULMONARY DISEASE [None]
